FAERS Safety Report 8923458 (Version 1)
Quarter: 2012Q4

REPORT INFORMATION
  Report Type: 
  Country: US (occurrence: US)
  Receive Date: 20121123
  Receipt Date: 20121123
  Transmission Date: 20130627
  Serious: Yes (Other)
  Sender: FDA-Public Use
  Company Number: US-BAYER-2012-121510

PATIENT

DRUGS (3)
  1. ALEVE CAPLET/TABLET,MIDOL EXTENDED RELIEF CAPLET [Suspect]
     Dosage: UNK
  2. ANALGESICS [Concomitant]
  3. MUSCLE RELAXANT [Concomitant]

REACTIONS (8)
  - Spondylitis [None]
  - Insomnia [None]
  - Gait disturbance [None]
  - Mobility decreased [None]
  - Dysstasia [None]
  - Pain [None]
  - Overdose [None]
  - Drug ineffective [None]
